FAERS Safety Report 8294811-2 (Version None)
Quarter: 2012Q2

REPORT INFORMATION
  Report Type: 
  Country: None (occurrence: None)
  Receive Date: 20120418
  Receipt Date: 20120410
  Transmission Date: 20120825
  Serious: Yes (Other)
  Sender: FDA-Public Use
  Company Number: US-JNJFOC-20120405208

PATIENT

DRUGS (7)
  1. DOXORUBICIN HCL [Suspect]
     Indication: BONE SARCOMA
     Route: 042
  2. CARBOPLATIN [Suspect]
     Indication: BONE SARCOMA
     Route: 065
  3. IFOSFAMIDE [Suspect]
     Indication: MALIGNANT FIBROUS HISTIOCYTOMA
     Route: 065
  4. CARBOPLATIN [Suspect]
     Indication: MALIGNANT FIBROUS HISTIOCYTOMA
     Route: 065
  5. IFOSFAMIDE [Suspect]
     Indication: BONE SARCOMA
     Route: 065
  6. DOXORUBICIN HCL [Suspect]
     Indication: MALIGNANT FIBROUS HISTIOCYTOMA
     Route: 042
  7. NEUPOGEN [Concomitant]
     Route: 065

REACTIONS (23)
  - URINE ELECTROLYTES ABNORMAL [None]
  - BLOOD CREATININE INCREASED [None]
  - HAEMOGLOBIN DECREASED [None]
  - STOMATITIS [None]
  - HYPOCALCAEMIA [None]
  - LYMPHOPENIA [None]
  - HYPOKALAEMIA [None]
  - NEUTROPENIA [None]
  - HYPOPHOSPHATAEMIA [None]
  - DECREASED APPETITE [None]
  - VOMITING [None]
  - FEBRILE NEUTROPENIA [None]
  - THROMBOCYTOPENIA [None]
  - HYPERBILIRUBINAEMIA [None]
  - HEPATIC ENZYME INCREASED [None]
  - HYPONATRAEMIA [None]
  - OFF LABEL USE [None]
  - PHARYNGITIS [None]
  - DEAFNESS [None]
  - WOUND INFECTION [None]
  - HYPOTENSION [None]
  - NAUSEA [None]
  - INFECTION [None]
